FAERS Safety Report 12125115 (Version 2)
Quarter: 2016Q1

REPORT INFORMATION
  Report Type: Spontaneous
  Country: US (occurrence: US)
  Receive Date: 20160229
  Receipt Date: 20160229
  Transmission Date: 20160526
  Serious: No
  Sender: FDA-Public Use
  Company Number: US-ABBVIE-15P-163-1399578-00

PATIENT
  Sex: Male
  Weight: 65.83 kg

DRUGS (4)
  1. ANDROGEL [Suspect]
     Active Substance: TESTOSTERONE
     Indication: BLOOD TESTOSTERONE DECREASED
     Dosage: 2 PUMPS
     Route: 061
     Dates: start: 2013, end: 2014
  2. ACETAZOLAMIDE. [Concomitant]
     Active Substance: ACETAZOLAMIDE
     Indication: GLAUCOMA
  3. ATROPINE. [Concomitant]
     Active Substance: ATROPINE
     Indication: GLAUCOMA
     Dosage: EYE DROP
  4. ANDROGEL [Suspect]
     Active Substance: TESTOSTERONE
     Dosage: 4 PUMPS
     Route: 061
     Dates: start: 2014

REACTIONS (4)
  - Somnolence [Not Recovered/Not Resolved]
  - Drug ineffective [Not Recovered/Not Resolved]
  - Weight fluctuation [Not Recovered/Not Resolved]
  - Depressed level of consciousness [Not Recovered/Not Resolved]

NARRATIVE: CASE EVENT DATE: 2015
